FAERS Safety Report 5598590-9 (Version None)
Quarter: 2008Q1

REPORT INFORMATION
  Report Type: 
  Country: None (occurrence: None)
  Receive Date: 20080122
  Receipt Date: 20080115
  Transmission Date: 20080703
  Serious: Yes (Other)
  Sender: FDA-Public Use
  Company Number: US-JNJFOC-20071206060

PATIENT
  Sex: Female
  Weight: 51.71 kg

DRUGS (18)
  1. REMICADE [Suspect]
     Route: 042
  2. REMICADE [Suspect]
     Route: 042
  3. REMICADE [Suspect]
     Route: 042
  4. REMICADE [Suspect]
     Indication: RHEUMATOID ARTHRITIS
     Route: 042
  5. BONIVA [Concomitant]
  6. GAS X [Concomitant]
  7. LYRICA [Concomitant]
     Indication: NEUROPATHY PERIPHERAL
  8. MS CONTIN [Concomitant]
     Indication: PAIN
  9. MORPHINE SULFATE [Concomitant]
  10. METHOTREXATE [Concomitant]
     Indication: RHEUMATOID ARTHRITIS
  11. FOLIC ACID [Concomitant]
  12. FLEXERIL [Concomitant]
  13. OMEPRAZOLE [Concomitant]
  14. SYSTANE [Concomitant]
     Indication: DRY EYE
  15. METAMUCIL [Concomitant]
  16. CALCIUM GLUCONATE [Concomitant]
  17. LORATADINE [Concomitant]
     Indication: MULTIPLE ALLERGIES
  18. PREDNISONE [Concomitant]

REACTIONS (2)
  - BREAST CANCER [None]
  - RASH [None]
